FAERS Safety Report 20549283 (Version 1)
Quarter: 2022Q1

REPORT INFORMATION
  Report Type: Spontaneous
  Country: US (occurrence: US)
  Receive Date: 20220303
  Receipt Date: 20220303
  Transmission Date: 20220423
  Serious: No
  Sender: FDA-Public Use
  Company Number: US-ALLERGAN-2132917US

PATIENT
  Age: 70 Year
  Sex: Female

DRUGS (8)
  1. RESTASIS [Suspect]
     Active Substance: CYCLOSPORINE
     Indication: Dry eye
     Dosage: UNK UNK, BID
  2. REFRESH OPTIVE [Concomitant]
     Active Substance: CARBOXYMETHYLCELLULOSE SODIUM\GLYCERIN
     Indication: Dry eye
  3. REFRESH OPTIVE MEGA 3 [Concomitant]
  4. REFRESH PM [PARAFFIN, LIQUID;WHITE SOFT PARAFFIN;WOOL ALCOHOLS] [Concomitant]
     Indication: Dry eye
  5. LEVOTHYROXINE [Concomitant]
     Active Substance: LEVOTHYROXINE
  6. ASCORBIC ACID [Concomitant]
     Active Substance: ASCORBIC ACID
  7. BIOTIN [Concomitant]
     Active Substance: BIOTIN
  8. VITAMINS [Concomitant]
     Active Substance: VITAMINS

REACTIONS (8)
  - Drug intolerance [Unknown]
  - Visual impairment [Not Recovered/Not Resolved]
  - Erythema of eyelid [Unknown]
  - Pain [Unknown]
  - Vision blurred [Unknown]
  - Blepharitis [Unknown]
  - Hypersensitivity [Unknown]
  - Eye pain [Unknown]

NARRATIVE: CASE EVENT DATE: 20191121
